FAERS Safety Report 20176655 (Version 2)
Quarter: 2022Q1

REPORT INFORMATION
  Report Type: Spontaneous
  Country: US (occurrence: US)
  Receive Date: 20211213
  Receipt Date: 20220106
  Transmission Date: 20220424
  Serious: Yes (Other)
  Sender: FDA-Public Use
  Company Number: US-PFIZER INC-202101689880

PATIENT
  Age: 82 Year
  Sex: Female

DRUGS (2)
  1. EUCRISA [Suspect]
     Active Substance: CRISABOROLE
     Dosage: UNK (60 G TUBE)
  2. EUCRISA [Suspect]
     Active Substance: CRISABOROLE
     Dosage: UNK (60 G TUBE)

REACTIONS (10)
  - Skin infection [Unknown]
  - Drug ineffective [Unknown]
  - Skin haemorrhage [Unknown]
  - Skin swelling [Unknown]
  - Pruritus [Unknown]
  - Illness [Unknown]
  - Eczema [Unknown]
  - Rash pustular [Unknown]
  - Expired product administered [Unknown]
  - Insomnia [Unknown]
